FAERS Safety Report 17859536 (Version 2)
Quarter: 2020Q3

REPORT INFORMATION
  Report Type: Report from Study
  Country: US (occurrence: US)
  Receive Date: 20200604
  Receipt Date: 20200706
  Transmission Date: 20201103
  Serious: No
  Sender: FDA-Public Use
  Company Number: US-009507513-2006USA000913

PATIENT
  Sex: Male

DRUGS (2)
  1. SUVOREXANT. [Suspect]
     Active Substance: SUVOREXANT
     Indication: INSOMNIA
     Dosage: STRENGTH: 5 MG/UNK
     Route: 048
  2. SUVOREXANT. [Suspect]
     Active Substance: SUVOREXANT
     Dosage: DOUBLE DOSE, UNK

REACTIONS (2)
  - Intentional product misuse [Unknown]
  - Drug ineffective [Not Recovered/Not Resolved]
